FAERS Safety Report 10578674 (Version 2)
Quarter: 2015Q1

REPORT INFORMATION
  Report Type: Spontaneous
  Country: US (occurrence: US)
  Receive Date: 20141112
  Receipt Date: 20150105
  Transmission Date: 20150720
  Serious: Yes (Disabling, Other)
  Sender: FDA-Public Use
  Company Number: US-ASTELLAS-2014US017176

PATIENT
  Age: 63 Year
  Sex: Female

DRUGS (2)
  1. VESICARE [Suspect]
     Active Substance: SOLIFENACIN SUCCINATE
     Indication: INCONTINENCE
     Route: 048
     Dates: start: 201309
  2. LYRICA [Concomitant]
     Active Substance: PREGABALIN
     Indication: MYALGIA
     Route: 048
     Dates: start: 20140709

REACTIONS (4)
  - Gait disturbance [Not Recovered/Not Resolved]
  - Muscle disorder [Not Recovered/Not Resolved]
  - Intentional product misuse [Unknown]
  - Spinal fracture [Recovered/Resolved]

NARRATIVE: CASE EVENT DATE: 201406
